FAERS Safety Report 20095966 (Version 1)
Quarter: 2021Q4

REPORT INFORMATION
  Report Type: Spontaneous
  Country: US (occurrence: None)
  Receive Date: 20211120
  Receipt Date: 20211120
  Transmission Date: 20220303
  Serious: Yes (Death, Hospitalization)
  Sender: FDA-Public Use
  Company Number: None

PATIENT
  Age: 65 Year
  Sex: Male
  Weight: 78.5 kg

DRUGS (13)
  1. CASIRIVIMAB\IMDEVIMAB [Suspect]
     Active Substance: CASIRIVIMAB\IMDEVIMAB
     Indication: COVID-19
     Dosage: OTHER FREQUENCY : ONCE;?
     Route: 042
     Dates: start: 20211119, end: 20211119
  2. Reno Cap [Concomitant]
  3. APREMILAST [Concomitant]
     Active Substance: APREMILAST
  4. ASPIRIN [Concomitant]
     Active Substance: ASPIRIN
  5. ATORVASTATIN [Concomitant]
     Active Substance: ATORVASTATIN
  6. CARVEDILOL [Concomitant]
     Active Substance: CARVEDILOL
  7. INSULIN GLARGINE [Concomitant]
     Active Substance: INSULIN GLARGINE
  8. INSULIN LISPRO [Concomitant]
     Active Substance: INSULIN LISPRO
  9. OMEPRAZOLE [Concomitant]
     Active Substance: OMEPRAZOLE
  10. PREGABALIN [Concomitant]
     Active Substance: PREGABALIN
  11. PROMETHAZINE WITH CODEINE [Concomitant]
     Active Substance: CODEINE PHOSPHATE\PROMETHAZINE HYDROCHLORIDE
  12. SERTRALINE [Concomitant]
     Active Substance: SERTRALINE HYDROCHLORIDE
  13. TRAZODONE [Concomitant]
     Active Substance: TRAZODONE HYDROCHLORIDE

REACTIONS (9)
  - Respiratory distress [None]
  - Lung infiltration [None]
  - Pulmonary oedema [None]
  - Electrocardiogram ST segment depression [None]
  - Electrocardiogram T wave inversion [None]
  - Cardiac arrest [None]
  - Oxygen saturation decreased [None]
  - Infusion related reaction [None]
  - Troponin increased [None]

NARRATIVE: CASE EVENT DATE: 20211119
